FAERS Safety Report 9241590 (Version 1)
Quarter: 2013Q2

REPORT INFORMATION
  Report Type: Spontaneous
  Country: US (occurrence: US)
  Receive Date: 20130419
  Receipt Date: 20130419
  Transmission Date: 20140414
  Serious: Yes (Hospitalization)
  Sender: FDA-Public Use
  Company Number: PHEH2013US008776

PATIENT
  Sex: Male

DRUGS (5)
  1. DIOVAN [Suspect]
     Dosage: 320 MG, UNK
  2. GABAPENTIN [Concomitant]
     Dosage: 300 MG, UNK
  3. PRISTIQ [Concomitant]
     Dosage: 50 MG, UNK
  4. CRESTOR [Concomitant]
     Dosage: 10 MG, UNK
  5. NOVOLOG [Concomitant]
     Dosage: 1 DF(70/30)

REACTIONS (2)
  - Localised infection [Unknown]
  - Blister [Unknown]
